FAERS Safety Report 4586826-2 (Version None)
Quarter: 2005Q1

REPORT INFORMATION
  Report Type: 
  Country: None (occurrence: None)
  Receive Date: 20050218
  Receipt Date: 20050127
  Transmission Date: 20050727
  Serious: No
  Sender: FDA-Public Use
  Company Number: AU-AMGEN-US109971

PATIENT
  Sex: Male
  Weight: 59 kg

DRUGS (1)
  1. ARANESP [Suspect]
     Indication: RENAL FAILURE CHRONIC
     Dates: start: 20020701

REACTIONS (2)
  - FALSE POSITIVE LABORATORY RESULT [None]
  - NO ADVERSE DRUG EFFECT [None]
